FAERS Safety Report 6671418-1 (Version None)
Quarter: 2010Q2

REPORT INFORMATION
  Report Type: 
  Country: None (occurrence: None)
  Receive Date: 20100407
  Receipt Date: 20100401
  Transmission Date: 20101027
  Serious: Yes (Other)
  Sender: FDA-Public Use
  Company Number: US-SANOFI-AVENTIS-2010SA019423

PATIENT
  Age: 52 Year
  Sex: Female

DRUGS (3)
  1. AMBIEN [Suspect]
     Indication: INSOMNIA
     Route: 048
     Dates: start: 20080601
  2. ALCOHOL [Suspect]
     Dosage: SEVERAL GLASSES
     Route: 048
  3. TRAZODONE HCL [Suspect]
     Indication: DEPRESSION
     Route: 048

REACTIONS (3)
  - AMNESIA [None]
  - IMPAIRED DRIVING ABILITY [None]
  - ROAD TRAFFIC ACCIDENT [None]
